FAERS Safety Report 4505988-6 (Version None)
Quarter: 2004Q4

REPORT INFORMATION
  Report Type: 
  Country: None (occurrence: None)
  Receive Date: 20041025
  Receipt Date: 20031112
  Transmission Date: 20050328
  Serious: Yes (Hospitalization)
  Sender: FDA-Public Use
  Company Number: US-JNJFOC-20031000088

PATIENT
  Age: 40 Year
  Sex: Male
  Weight: 166 kg

DRUGS (6)
  1. REMICADE [Suspect]
     Indication: CROHN'S DISEASE
     Dosage: 400 MG, INTRAVENOUS
     Route: 042
     Dates: start: 20030721
  2. PENTASA [Concomitant]
  3. AZATHIOPRINE [Concomitant]
  4. PREDNISONE [Concomitant]
  5. ACIPHEX [Concomitant]
  6. REGLAN [Concomitant]

REACTIONS (3)
  - LUNG INFECTION PSEUDOMONAL [None]
  - PHARYNGITIS [None]
  - PULMONARY TUBERCULOSIS [None]
